FAERS Safety Report 9506947 (Version 1)
Quarter: 2013Q3

REPORT INFORMATION
  Report Type: Report from Study
  Country: US (occurrence: US)
  Receive Date: 20130909
  Receipt Date: 20130909
  Transmission Date: 20140515
  Serious: Yes (Other)
  Sender: FDA-Public Use
  Company Number: US-ROCHE-1269948

PATIENT
  Sex: Female

DRUGS (8)
  1. AVASTIN [Suspect]
     Indication: CERVIX CARCINOMA
     Dosage: FOR 12 CYCLES
     Route: 065
     Dates: start: 20130626
  2. ROCEPHIN [Suspect]
     Indication: PRODUCT USED FOR UNKNOWN INDICATION
     Route: 065
  3. CARBOPLATIN [Concomitant]
     Route: 065
  4. PROCRIT [Concomitant]
  5. CISPLATIN [Concomitant]
     Route: 065
  6. DIFLUCAN [Concomitant]
     Route: 042
  7. EMEND [Concomitant]
     Route: 065
  8. IBUPROFEN [Concomitant]
     Dosage: AS PER NEEDED
     Route: 065

REACTIONS (3)
  - Metastases to lung [Unknown]
  - Oesophagitis [Unknown]
  - Pyrexia [Unknown]
